FAERS Safety Report 12317491 (Version 3)
Quarter: 2016Q4

REPORT INFORMATION
  Report Type: Spontaneous
  Country: US (occurrence: US)
  Receive Date: 20160429
  Receipt Date: 20161222
  Transmission Date: 20170207
  Serious: Yes (Hospitalization, Other)
  Sender: FDA-Public Use
  Company Number: US-PFIZER INC-2016226235

PATIENT
  Age: 80 Year
  Sex: Male
  Weight: 85.71 kg

DRUGS (1)
  1. SUTENT [Suspect]
     Active Substance: SUNITINIB MALATE
     Indication: METASTATIC RENAL CELL CARCINOMA
     Dosage: 37.5 MG, CYCLIC (28 DAYS ON/14 DAYS OFF)
     Dates: start: 20140123, end: 201604

REACTIONS (14)
  - Disease progression [Unknown]
  - Oral mucosal erythema [Unknown]
  - Gingival pain [Unknown]
  - Dysgeusia [Unknown]
  - Dry mouth [Unknown]
  - Oral pain [Recovered/Resolved]
  - Metastases to bone [Not Recovered/Not Resolved]
  - Pain in extremity [Unknown]
  - Upper limb fracture [Not Recovered/Not Resolved]
  - Metastatic renal cell carcinoma [Unknown]
  - Glossodynia [Unknown]
  - Fall [Unknown]
  - Decreased appetite [Unknown]
  - Erythema [Unknown]

NARRATIVE: CASE EVENT DATE: 201612
